FAERS Safety Report 15150608 (Version 18)
Quarter: 2022Q2

REPORT INFORMATION
  Report Type: Report from Study
  Country: NL (occurrence: NL)
  Receive Date: 20180716
  Receipt Date: 20220602
  Transmission Date: 20220721
  Serious: Yes (Hospitalization, Other)
  Sender: FDA-Public Use
  Company Number: NL-ABBVIE-18K-114-2339573-00

PATIENT
  Sex: Male
  Weight: 82 kg

DRUGS (9)
  1. CARBIDOPA\LEVODOPA [Suspect]
     Active Substance: CARBIDOPA\LEVODOPA
     Indication: Parkinson^s disease
     Dosage: MORNING DOSE: 11.0, CONTINUOUS DOSE: 2.9, EXTRA DOSE: 1.0
     Route: 050
     Dates: start: 20180416, end: 2018
  2. CARBIDOPA\LEVODOPA [Suspect]
     Active Substance: CARBIDOPA\LEVODOPA
     Dosage: MORNING DOSE: 12.0ML, CONTINUOUS DOSE: 3.2ML, EXTRA DOSE: 1.0
     Route: 050
     Dates: start: 2018, end: 2018
  3. CARBIDOPA\LEVODOPA [Suspect]
     Active Substance: CARBIDOPA\LEVODOPA
     Dosage: MORNING DOSE: 11.5, CONTINUOUS DOSE: 3
     Route: 050
     Dates: start: 20180416
  4. CARBIDOPA\LEVODOPA [Suspect]
     Active Substance: CARBIDOPA\LEVODOPA
     Dosage: MD:11.5ML, CD:3.0ML/H, ED:1.0M
     Route: 050
  5. ROPINIROLE [Concomitant]
     Active Substance: ROPINIROLE
     Indication: Product used for unknown indication
  6. MOVICOLON [Concomitant]
     Active Substance: POLYETHYLENE GLYCOL 3350\POTASSIUM CHLORIDE\SODIUM BICARBONATE\SODIUM CHLORIDE
     Indication: Abnormal faeces
  7. PRAMIPEXOLE [Concomitant]
     Active Substance: PRAMIPEXOLE
     Indication: Product used for unknown indication
  8. BENSERAZIDE HYDROCHLORIDE\LEVODOPA [Concomitant]
     Active Substance: BENSERAZIDE HYDROCHLORIDE\LEVODOPA
     Indication: Parkinson^s disease
  9. POLYETHYLENE GLYCOLS [Concomitant]
     Active Substance: POLYETHYLENE GLYCOLS
     Indication: Constipation

REACTIONS (58)
  - Intra-abdominal fluid collection [Recovered/Resolved]
  - Gastrointestinal disorder [Recovered/Resolved]
  - Pneumoperitoneum [Recovering/Resolving]
  - Stoma site pain [Not Recovered/Not Resolved]
  - Abdominal pain [Recovered/Resolved]
  - Pneumoperitoneum [Recovered/Resolved]
  - Cognitive disorder [Not Recovered/Not Resolved]
  - Daydreaming [Recovering/Resolving]
  - Device deployment issue [Recovering/Resolving]
  - Psychiatric symptom [Not Recovered/Not Resolved]
  - Fibroma [Recovered/Resolved]
  - Muscle rigidity [Not Recovered/Not Resolved]
  - Taste disorder [Not Recovered/Not Resolved]
  - Nocturia [Not Recovered/Not Resolved]
  - Memory impairment [Not Recovered/Not Resolved]
  - Mobility decreased [Not Recovered/Not Resolved]
  - Early satiety [Not Recovered/Not Resolved]
  - Fatigue [Unknown]
  - Myalgia [Not Recovered/Not Resolved]
  - General physical health deterioration [Not Recovered/Not Resolved]
  - Muscle rigidity [Not Recovered/Not Resolved]
  - Malaise [Not Recovered/Not Resolved]
  - Infrequent bowel movements [Recovered/Resolved]
  - Poor quality sleep [Recovering/Resolving]
  - Restlessness [Unknown]
  - Tremor [Not Recovered/Not Resolved]
  - Feeling abnormal [Not Recovered/Not Resolved]
  - Weight decreased [Recovered/Resolved]
  - Nightmare [Recovering/Resolving]
  - Decreased appetite [Recovered/Resolved]
  - Procedural pain [Recovering/Resolving]
  - Delirium [Recovering/Resolving]
  - Hypokinesia [Recovered/Resolved]
  - Hallucination, visual [Not Recovered/Not Resolved]
  - Constipation [Recovered/Resolved]
  - Dyskinesia [Not Recovered/Not Resolved]
  - Stoma site discharge [Recovered/Resolved]
  - Abdominal distension [Not Recovered/Not Resolved]
  - Stoma site inflammation [Recovering/Resolving]
  - Stoma site discharge [Recovered/Resolved]
  - Stoma site infection [Recovering/Resolving]
  - Hypokinesia [Unknown]
  - Constipation [Recovered/Resolved]
  - Confusional state [Not Recovered/Not Resolved]
  - Middle insomnia [Recovering/Resolving]
  - On and off phenomenon [Not Recovered/Not Resolved]
  - Stoma site haemorrhage [Not Recovered/Not Resolved]
  - Hallucination [Recovered/Resolved]
  - Stoma site irritation [Not Recovered/Not Resolved]
  - Pain [Recovered/Resolved]
  - Stoma site discomfort [Recovered/Resolved]
  - Infrequent bowel movements [Not Recovered/Not Resolved]
  - Gastrointestinal disorder [Not Recovered/Not Resolved]
  - Bradykinesia [Unknown]
  - Middle insomnia [Unknown]
  - Hallucination [Recovering/Resolving]
  - Stoma site reaction [Recovered/Resolved]
  - On and off phenomenon [Not Recovered/Not Resolved]

NARRATIVE: CASE EVENT DATE: 20180101
